FAERS Safety Report 4712554-6 (Version None)
Quarter: 2005Q2

REPORT INFORMATION
  Report Type: 
  Country: None (occurrence: None)
  Receive Date: 20050629
  Receipt Date: 20050413
  Transmission Date: 20051028
  Serious: No
  Sender: FDA-Public Use
  Company Number: 05P-163-0297215-00

PATIENT
  Age: 71 Year
  Sex: Female
  Weight: 98 kg

DRUGS (12)
  1. HUMIRA [Suspect]
     Indication: RHEUMATOID ARTHRITIS
     Dosage: 40 MG, 1 IN 2 WK, SUBCUTANEOUS
     Route: 058
     Dates: start: 20050325
  2. INSULIN HUMULIN [Concomitant]
  3. BUMITAXIDE(BUMETANIDE) [Concomitant]
  4. INSULIN [Concomitant]
  5. HYDROCHLOROQUINE PHOSPHATE [Concomitant]
  6. BEXTRA [Concomitant]
  7. NIFEDIPINE [Concomitant]
  8. ATENOLOL [Concomitant]
  9. IRBESARTAN [Concomitant]
  10. CLONIDINE [Concomitant]
  11. POTASSIUM CHLORIDE [Concomitant]
  12. AVANDAMET [Concomitant]

REACTIONS (5)
  - ARTHRALGIA [None]
  - BLOOD GLUCOSE INCREASED [None]
  - COUGH [None]
  - OEDEMA PERIPHERAL [None]
  - WEIGHT INCREASED [None]
